APPROVED DRUG PRODUCT: NITROFURANTOIN (MONOHYDRATE/MACROCRYSTALS)
Active Ingredient: NITROFURANTOIN; NITROFURANTOIN, MACROCRYSTALLINE
Strength: 75MG;25MG
Dosage Form/Route: CAPSULE;ORAL
Application: A076951 | Product #001
Applicant: RANBAXY LABORATORIES LTD
Approved: Mar 30, 2005 | RLD: No | RS: No | Type: DISCN